FAERS Safety Report 25957283 (Version 1)
Quarter: 2025Q4

REPORT INFORMATION
  Report Type: Spontaneous
  Country: US (occurrence: US)
  Receive Date: 20251024
  Receipt Date: 20251024
  Transmission Date: 20260117
  Serious: No
  Sender: SEPTODONT
  Company Number: US-SEPTODONT-2025019746

PATIENT
  Age: 49 Year
  Sex: Female

DRUGS (5)
  1. SEPTOCAINE [Suspect]
     Active Substance: ARTICAINE HYDROCHLORIDE\EPINEPHRINE BITARTRATE
     Indication: Dental local anaesthesia
     Dosage: 5 CARPULES ON CROWN AT TOOTH #31
     Route: 004
     Dates: start: 20250610, end: 20250610
  2. Hurricane 20% Benzocaine [Concomitant]
     Indication: Product used for unknown indication
  3. Henry Schein 27Ga 30mm [Concomitant]
     Indication: Dental local anaesthesia
  4. PRISTIQ EXTENDED-RELEASE [Concomitant]
     Active Substance: DESVENLAFAXINE SUCCINATE
     Indication: Product used for unknown indication
  5. HALCION [Suspect]
     Active Substance: TRIAZOLAM
     Indication: Anxiety
     Dosage: 0.25 MG DAILY DOSE.
     Dates: start: 20250609, end: 20250610

REACTIONS (2)
  - Drug ineffective [Unknown]
  - Injection site discomfort [Unknown]

NARRATIVE: CASE EVENT DATE: 20250610
